FAERS Safety Report 8147505-8 (Version None)
Quarter: 2012Q1

REPORT INFORMATION
  Report Type: 
  Country: None (occurrence: None)
  Receive Date: 20120218
  Receipt Date: 20110427
  Transmission Date: 20120608
  Serious: No
  Sender: FDA-Public Use
  Company Number: US-ALLERGAN-1102238US

PATIENT
  Age: 55 Year
  Sex: Female
  Weight: 56.689 kg

DRUGS (3)
  1. BOTOX COSMETIC [Suspect]
     Indication: SKIN WRINKLING
     Dosage: UNK UNITS, SINGLE
     Route: 030
     Dates: start: 20080701, end: 20080701
  2. BOTOX COSMETIC [Suspect]
     Dosage: UNK UNITS, SINGLE
     Route: 030
     Dates: start: 20110406, end: 20110406
  3. BOTOX COSMETIC [Suspect]
     Dosage: 40 UNITS, SINGLE
     Route: 030
     Dates: start: 20101013, end: 20101013

REACTIONS (2)
  - FLUSHING [None]
  - PARAESTHESIA [None]
